FAERS Safety Report 7015313-7 (Version None)
Quarter: 2010Q3

REPORT INFORMATION
  Report Type: 
  Country: None (occurrence: None)
  Receive Date: 20100927
  Receipt Date: 20100913
  Transmission Date: 20110219
  Serious: Yes (Hospitalization, Other)
  Sender: FDA-Public Use
  Company Number: FR-ELI_LILLY_AND_COMPANY-FR201009002886

PATIENT
  Sex: Male

DRUGS (7)
  1. ALIMTA [Suspect]
     Indication: LUNG ADENOCARCINOMA METASTATIC
     Dosage: UNK, UNK
     Route: 042
     Dates: start: 20091101, end: 20100101
  2. ALIMTA [Suspect]
     Dosage: 1000 MG, UNKNOWN
     Route: 042
     Dates: start: 20100601
  3. CISPLATIN [Concomitant]
     Indication: LUNG ADENOCARCINOMA METASTATIC
     Dates: start: 20091101, end: 20100101
  4. AVASTIN [Concomitant]
     Indication: LUNG ADENOCARCINOMA METASTATIC
     Dates: start: 20091101, end: 20100101
  5. AVASTIN [Concomitant]
     Dates: start: 20100201, end: 20100501
  6. PREVISCAN [Concomitant]
     Dosage: 20 MG/DAY ACCORDING TO INR
     Route: 048
     Dates: start: 20100101
  7. VITAMIN B [Concomitant]

REACTIONS (5)
  - CYTOLYTIC HEPATITIS [None]
  - FEBRILE BONE MARROW APLASIA [None]
  - GENERAL PHYSICAL HEALTH DETERIORATION [None]
  - RASH [None]
  - SUBCLAVIAN VEIN THROMBOSIS [None]
